FAERS Safety Report 10206074 (Version 1)
Quarter: 2014Q2

REPORT INFORMATION
  Report Type: Spontaneous
  Country: US (occurrence: US)
  Receive Date: 20140530
  Receipt Date: 20140530
  Transmission Date: 20141212
  Serious: No
  Sender: FDA-Public Use
  Company Number: US-PFIZER INC-2014148301

PATIENT
  Age: 55 Year
  Sex: Female
  Weight: 61.68 kg

DRUGS (2)
  1. VENLAFAXINE HCL [Suspect]
     Indication: ANXIETY
     Dosage: 37.5 MG, DAILY
     Dates: start: 20140524
  2. VENLAFAXINE HCL [Suspect]
     Indication: DEPRESSION

REACTIONS (6)
  - Lethargy [Unknown]
  - Pruritus [Unknown]
  - Muscular weakness [Unknown]
  - Muscle fatigue [Unknown]
  - Asthenia [Unknown]
  - Blood thyroid stimulating hormone increased [Unknown]
